FAERS Safety Report 8117700-2 (Version None)
Quarter: 2012Q1

REPORT INFORMATION
  Report Type: 
  Country: None (occurrence: None)
  Receive Date: 20120203
  Receipt Date: 20120203
  Transmission Date: 20120608
  Serious: No
  Sender: FDA-Public Use
  Company Number: None

PATIENT
  Age: 13 Year
  Sex: Male

DRUGS (1)
  1. NORDITROPIN FLEXPRO [Suspect]
     Dosage: 1.9MG DAILY SUBCUTANEOUS
     Route: 058
     Dates: start: 20120114

REACTIONS (2)
  - INCORRECT DOSE ADMINISTERED [None]
  - DEVICE BREAKAGE [None]
